FAERS Safety Report 8257118-5 (Version None)
Quarter: 2012Q2

REPORT INFORMATION
  Report Type: 
  Country: None (occurrence: None)
  Receive Date: 20120403
  Receipt Date: 20120330
  Transmission Date: 20120825
  Serious: Yes (Other)
  Sender: FDA-Public Use
  Company Number: US-PFIZER INC-2012069644

PATIENT
  Sex: Female

DRUGS (2)
  1. PROTONIX [Suspect]
     Dosage: UNK
     Dates: start: 20030101
  2. NEURONTIN [Suspect]
     Dosage: UNK
     Dates: start: 20050101

REACTIONS (9)
  - RIB FRACTURE [None]
  - BACK DISORDER [None]
  - GASTRIC DISORDER [None]
  - GASTRIC NEOPLASM [None]
  - INJURY [None]
  - SYNCOPE [None]
  - LOSS OF CONSCIOUSNESS [None]
  - FALL [None]
  - TRAUMATIC RENAL INJURY [None]
